FAERS Safety Report 6386931-4 (Version None)
Quarter: 2009Q4

REPORT INFORMATION
  Report Type: 
  Country: None (occurrence: None)
  Receive Date: 20091002
  Receipt Date: 20090923
  Transmission Date: 20100525
  Serious: Yes (Other)
  Sender: FDA-Public Use
  Company Number: DE-ELI_LILLY_AND_COMPANY-DE200909005212

PATIENT
  Sex: Female
  Weight: 60 kg

DRUGS (5)
  1. YENTREVE [Suspect]
     Indication: URINARY INCONTINENCE
     Dosage: UNK, DAILY (1/D)
     Route: 048
     Dates: start: 20090901
  2. CAPTOPRIL [Concomitant]
     Indication: CARDIAC FAILURE
     Dosage: 12.5 MG, UNKNOWN
     Route: 065
  3. ONE-ALPHA [Concomitant]
     Dosage: 1 U, UNKNOWN
     Route: 065
  4. CITALOPRAM HYDROBROMIDE [Concomitant]
     Dosage: 10 MG, UNKNOWN
     Route: 065
  5. LANITOP [Concomitant]
     Indication: CARDIAC FAILURE
     Dosage: UNK, UNKNOWN
     Route: 065

REACTIONS (1)
  - CIRCULATORY COLLAPSE [None]
